FAERS Safety Report 8461264-0 (Version None)
Quarter: 2012Q2

REPORT INFORMATION
  Report Type: 
  Country: None (occurrence: None)
  Receive Date: 20120619
  Receipt Date: 20120619
  Transmission Date: 20120825
  Serious: No
  Sender: FDA-Public Use
  Company Number: None

PATIENT
  Age: 78 Year
  Sex: Female
  Weight: 56.6996 kg

DRUGS (9)
  1. BYSTOLIC [Concomitant]
  2. AMLODIPINE [Concomitant]
  3. PREDNISONE [Concomitant]
  4. LISINOPRIL [Suspect]
     Indication: HYPERTENSION
     Dosage: 20 MG DAILY PO
     Route: 048
     Dates: start: 20101229, end: 20120126
  5. PLAVIX [Concomitant]
  6. IBUPROFEN [Suspect]
     Indication: JOINT INJURY
     Dosage: 600 MG TWICE DAILY PRN PO
     Route: 048
     Dates: start: 20120124, end: 20120126
  7. VENTOLIN [Concomitant]
  8. ADVAIR DISKUS 100/50 [Concomitant]
  9. SPIRIVA [Concomitant]

REACTIONS (5)
  - SWELLING FACE [None]
  - DYSPNOEA [None]
  - DYSPHAGIA [None]
  - LIP SWELLING [None]
  - URTICARIA [None]
